FAERS Safety Report 24202594 (Version 1)
Quarter: 2024Q3

REPORT INFORMATION
  Report Type: Spontaneous
  Country: US (occurrence: US)
  Receive Date: 20240813
  Receipt Date: 20240813
  Transmission Date: 20241016
  Serious: No
  Sender: JOHNSON AND JOHNSON
  Company Number: US-JNJFOC-20240826557

PATIENT
  Age: 9 Year
  Sex: Male

DRUGS (5)
  1. TOPAMAX [Suspect]
     Active Substance: TOPIRAMATE
     Indication: Overweight
     Route: 048
     Dates: start: 20120227
  2. TOPAMAX [Suspect]
     Active Substance: TOPIRAMATE
     Indication: Increased appetite
  3. TOPAMAX [Suspect]
     Active Substance: TOPIRAMATE
     Indication: Mood swings
  4. TOPAMAX [Suspect]
     Active Substance: TOPIRAMATE
     Indication: Behaviour disorder
  5. TOPAMAX [Suspect]
     Active Substance: TOPIRAMATE
     Indication: Irritability

REACTIONS (2)
  - Wrong technique in product usage process [Unknown]
  - Off label use [Unknown]

NARRATIVE: CASE EVENT DATE: 20120227
